FAERS Safety Report 20907598 (Version 7)
Quarter: 2022Q4

REPORT INFORMATION
  Report Type: Spontaneous
  Country: JP (occurrence: JP)
  Receive Date: 20220602
  Receipt Date: 20221122
  Transmission Date: 20230112
  Serious: Yes (Hospitalization, Other)
  Sender: FDA-Public Use
  Company Number: JP-MSD-2205JPN001268J

PATIENT
  Age: 8 Decade
  Sex: Male

DRUGS (6)
  1. KEYTRUDA [Suspect]
     Active Substance: PEMBROLIZUMAB
     Indication: Renal cell carcinoma stage IV
     Dosage: 200 MILLIGRAM, Q3W
     Route: 041
     Dates: start: 20220510, end: 20220531
  2. KEYTRUDA [Suspect]
     Active Substance: PEMBROLIZUMAB
     Dosage: 400 MILLIGRAM, EVERY 6 WEEKS
     Route: 041
     Dates: start: 20220621, end: 20221005
  3. LENVATINIB MESYLATE [Suspect]
     Active Substance: LENVATINIB MESYLATE
     Indication: Renal cell carcinoma stage IV
     Dosage: 20 MILLIGRAM, QD
     Route: 048
     Dates: start: 20220510, end: 20220523
  4. LENVATINIB MESYLATE [Suspect]
     Active Substance: LENVATINIB MESYLATE
     Dosage: 20 MILLIGRAM, QD, (5 DAYS ADMINISTERED AND 2 DAYS WITHDRAWN)
     Route: 048
     Dates: start: 20220531, end: 20220620
  5. LENVATINIB MESYLATE [Suspect]
     Active Substance: LENVATINIB MESYLATE
     Dosage: 4 MILLIGRAM, QD, (5 DAYS ADMINISTERED AND 2 DAYS WITHDRAWN)
     Route: 048
     Dates: start: 20220621, end: 20221005
  6. CALCIUM POLYSTYRENE SULFONATE [Concomitant]
     Active Substance: CALCIUM POLYSTYRENE SULFONATE
     Dosage: UNK
     Route: 048

REACTIONS (10)
  - Immune-mediated cholangitis [Recovering/Resolving]
  - Immune-mediated hypothyroidism [Not Recovered/Not Resolved]
  - Interstitial lung disease [Recovering/Resolving]
  - Pneumonia aspiration [Recovered/Resolved]
  - Rectal ulcer [Recovered/Resolved]
  - Hyperkalaemia [Recovered/Resolved]
  - Hypertension [Recovering/Resolving]
  - Palmar-plantar erythrodysaesthesia syndrome [Recovered/Resolved]
  - Stomatitis [Recovered/Resolved]
  - Constipation [Recovered/Resolved]

NARRATIVE: CASE EVENT DATE: 20220501
